FAERS Safety Report 23093875 (Version 1)
Quarter: 2023Q4

REPORT INFORMATION
  Report Type: Spontaneous
  Country: HK (occurrence: HK)
  Receive Date: 20231023
  Receipt Date: 20231023
  Transmission Date: 20240110
  Serious: Yes (Other)
  Sender: FDA-Public Use
  Company Number: HK-CHEPLA-2023013121

PATIENT
  Age: 35 Year
  Sex: Male

DRUGS (10)
  1. CLONAZEPAM [Suspect]
     Active Substance: CLONAZEPAM
     Indication: Somnolence
     Dosage: (MOTHER INSISTS PATIENT TO HAVE SOME NOON DOSE MEDICATIONS FOR PATIENT TO TAKE AFTERNOON NAP)
  2. CLONAZEPAM [Suspect]
     Active Substance: CLONAZEPAM
     Indication: Somnolence
     Dosage: TDS?DAILY DOSE: 3 MILLIGRAM
  3. PALIPERIDONE PALMITATE [Suspect]
     Active Substance: PALIPERIDONE PALMITATE
     Dosage: (TOOK FEW MONTHS WITH 25MG REDUCTION EACH ).
  4. PALIPERIDONE PALMITATE [Suspect]
     Active Substance: PALIPERIDONE PALMITATE
     Dosage: REDUCED TO 50MG Q4W
  5. CLOZAPINE [Suspect]
     Active Substance: CLOZAPINE
  6. CLOZAPINE [Suspect]
     Active Substance: CLOZAPINE
     Dosage: NOCTE
  7. CLOZAPINE [Suspect]
     Active Substance: CLOZAPINE
     Dosage: REDUCING
  8. PROPRANOLOL HYDROCHLORIDE [Suspect]
     Active Substance: PROPRANOLOL HYDROCHLORIDE
  9. LATUDA [Suspect]
     Active Substance: LURASIDONE HYDROCHLORIDE
     Dosage: DAILY DOSE: 80 MILLIGRAM
  10. LATUDA [Suspect]
     Active Substance: LURASIDONE HYDROCHLORIDE
     Dosage: NOCTE

REACTIONS (5)
  - Hallucination, auditory [Unknown]
  - Erectile dysfunction [Unknown]
  - Persecutory delusion [Unknown]
  - Breath odour [Unknown]
  - Dysphemia [Unknown]
